FAERS Safety Report 5429660-3 (Version None)
Quarter: 2007Q3

REPORT INFORMATION
  Report Type: 
  Country: None (occurrence: None)
  Receive Date: 20070829
  Receipt Date: 20070814
  Transmission Date: 20080115
  Serious: Yes (Hospitalization, Other)
  Sender: FDA-Public Use
  Company Number: US-SHR-US-2007-007278

PATIENT
  Age: 33 Year
  Sex: Female
  Weight: 91 kg

DRUGS (4)
  1. MIRENA [Suspect]
     Dosage: 20 A?G/DAY, CONT
     Route: 015
     Dates: start: 20040101
  2. FLEXERIL [Concomitant]
     Indication: FIBROMYALGIA
  3. ZYRTEC [Concomitant]
  4. PROZAC [Concomitant]

REACTIONS (5)
  - ABDOMINAL PAIN [None]
  - CHOLECYSTECTOMY [None]
  - GENITAL HAEMORRHAGE [None]
  - IUD MIGRATION [None]
  - PROCEDURAL PAIN [None]
